FAERS Safety Report 17267025 (Version 1)
Quarter: 2020Q1

REPORT INFORMATION
  Report Type: Spontaneous
  Country: US (occurrence: US)
  Receive Date: 20200110
  Receipt Date: 20200110
  Transmission Date: 20200409
  Serious: Yes (Hospitalization)
  Sender: FDA-Public Use
  Company Number: None

PATIENT
  Age: 81 Year
  Sex: Male

DRUGS (3)
  1. XALKORI [Suspect]
     Active Substance: CRIZOTINIB
  2. ONDANSETRON [Suspect]
     Active Substance: ONDANSETRON
     Dates: start: 20191202
  3. FUROSEMIDE. [Suspect]
     Active Substance: FUROSEMIDE
     Dates: start: 20191202

REACTIONS (4)
  - Swelling [None]
  - Cough [None]
  - Therapy cessation [None]
  - Dyspnoea [None]

NARRATIVE: CASE EVENT DATE: 20191219
